FAERS Safety Report 8562988 (Version 2)
Quarter: 2012Q4

REPORT INFORMATION
  Report Type: 
  Country: US (occurrence: US)
  Receive Date: 20120515
  Receipt Date: 20121017
  Transmission Date: 20130627
  Serious: Yes (Hospitalization)
  Sender: FDA-Public Use
  Company Number: US-BAYER-2012-046820

PATIENT
  Age: 25 Year
  Sex: Female

DRUGS (5)
  1. AMITIZA [Concomitant]
     Indication: CONSTIPATION
     Dosage: UNK
     Dates: start: 2009, end: 2011
  2. COREG [Concomitant]
     Indication: BLOOD PRESSURE MANAGEMENT
     Dosage: UNK
     Dates: start: 2009, end: 2010
  3. MICROGESTIN [Concomitant]
     Dosage: UNK
     Dates: start: 2010
  4. YASMIN [Suspect]
     Indication: CONTRACEPTION
     Dosage: UNK
     Dates: start: 2003, end: 2006
  5. VESICARE [Concomitant]
     Indication: HYPERTONIC BLADDER
     Dosage: UNK
     Dates: start: 2009, end: 2011

REACTIONS (10)
  - Gallbladder injury [None]
  - Cholecystitis [None]
  - Gastric ulcer [None]
  - Injury [None]
  - Pain [None]
  - General physical health deterioration [None]
  - Anxiety [None]
  - Emotional distress [None]
  - General physical health deterioration [None]
  - Pain [None]
